FAERS Safety Report 8619480-0 (Version None)
Quarter: 2012Q3

REPORT INFORMATION
  Report Type: 
  Country: None (occurrence: None)
  Receive Date: 20120824
  Receipt Date: 20120821
  Transmission Date: 20120928
  Serious: Yes (Hospitalization, Other)
  Sender: FDA-Public Use
  Company Number: US-PFIZER INC-2012027525

PATIENT
  Age: 61 Year
  Sex: Female
  Weight: 63 kg

DRUGS (4)
  1. NICOTROL [Suspect]
     Dosage: UNK
     Route: 045
  2. NICOTROL [Suspect]
     Dosage: UNKNOWN DOSE THREE TIMES A DAY
  3. NICOTROL [Suspect]
     Indication: SMOKING CESSATION THERAPY
     Dosage: UNK
     Dates: start: 20120122
  4. NICOTROL [Suspect]
     Dosage: UNKNOWN DOSE 20 TIMES A DAY

REACTIONS (10)
  - PRODUCT QUALITY ISSUE [None]
  - MALAISE [None]
  - DRUG INEFFECTIVE [None]
  - ANXIETY [None]
  - MEMORY IMPAIRMENT [None]
  - TOOTH EXTRACTION [None]
  - PAIN [None]
  - EMOTIONAL DISORDER [None]
  - COUGH [None]
  - CEREBROVASCULAR ACCIDENT [None]
